FAERS Safety Report 12388369 (Version 2)
Quarter: 2016Q3

REPORT INFORMATION
  Report Type: Spontaneous
  Country: DE (occurrence: DE)
  Receive Date: 20160520
  Receipt Date: 20160706
  Transmission Date: 20161109
  Serious: Yes (Other)
  Sender: FDA-Public Use
  Company Number: DE-WATSON-2016-09875

PATIENT
  Age: 34 Year
  Sex: Female
  Weight: 76 kg

DRUGS (7)
  1. AMOXICILLIN. [Concomitant]
     Active Substance: AMOXICILLIN
     Indication: CYSTITIS
     Dosage: UNK UNK, UNKNOWN
     Route: 048
     Dates: start: 20141229, end: 20150102
  2. CITALOPRAM [Suspect]
     Active Substance: CITALOPRAM HYDROBROMIDE
     Indication: DEPRESSION
     Dosage: 20 MG, DAILY
     Route: 048
     Dates: start: 20150509, end: 20150512
  3. FOLIO FORTE [Concomitant]
     Active Substance: FOLIC ACID\VITAMINS
     Indication: PROPHYLAXIS OF NEURAL TUBE DEFECT
     Dosage: 0.8 MG, DAILY
     Route: 048
  4. CLONT                              /00012501/ [Concomitant]
     Indication: GARDNERELLA TEST POSITIVE
     Dosage: 2 G, DAILY
     Route: 048
     Dates: start: 20150509, end: 20150516
  5. MAGNESIUM [Concomitant]
     Active Substance: MAGNESIUM
     Indication: CERVICAL INCOMPETENCE
     Dosage: UNK UNK, UNKNOWN
     Route: 048
     Dates: start: 20150516, end: 20150516
  6. CELESTAN                           /00008501/ [Concomitant]
     Indication: MATERNAL THERAPY TO ENHANCE FOETAL LUNG MATURITY
     Dosage: 12 MG, DAILY
     Route: 030
     Dates: start: 20150509, end: 20150510
  7. UTROGEST [Concomitant]
     Active Substance: PROGESTERONE
     Indication: CERVICAL INCOMPETENCE
     Dosage: 200 MG, DAILY
     Route: 065
     Dates: start: 20150516, end: 20150516

REACTIONS (1)
  - Foetal hypokinesia [Recovered/Resolved]
